FAERS Safety Report 7071297-7 (Version None)
Quarter: 2010Q4

REPORT INFORMATION
  Report Type: 
  Country: None (occurrence: None)
  Receive Date: 20101028
  Receipt Date: 20101028
  Transmission Date: 20110411
  Serious: Yes (Hospitalization)
  Sender: FDA-Public Use
  Company Number: None

PATIENT
  Sex: Male
  Weight: 90.9 kg

DRUGS (1)
  1. VANCOMYCIN [Suspect]
     Indication: BURSITIS INFECTIVE
     Dosage: VANCOMYCIN 1900MG Q 12HR IV
     Route: 042
     Dates: start: 20100924, end: 20101010

REACTIONS (2)
  - NEUTROPENIA [None]
  - WHITE BLOOD CELL COUNT DECREASED [None]
